FAERS Safety Report 18798479 (Version 1)
Quarter: 2021Q1

REPORT INFORMATION
  Report Type: Spontaneous
  Country: US (occurrence: US)
  Receive Date: 20210127
  Receipt Date: 20210127
  Transmission Date: 20210419
  Serious: Yes (Hospitalization)
  Sender: FDA-Public Use
  Company Number: None

PATIENT
  Age: 75 Year
  Sex: Male
  Weight: 120 kg

DRUGS (6)
  1. ATENOLOL 50MG DAILY [Concomitant]
  2. ELIQUIS 5MG TWICE A DAY [Concomitant]
  3. ASPIRIN 81MG DAILY [Concomitant]
     Active Substance: ASPIRIN
  4. BAMLANIVIMAB EUA [Suspect]
     Active Substance: BAMLANIVIMAB
     Indication: COVID-19
     Dosage: ?          OTHER FREQUENCY:ONCE;?
     Route: 042
     Dates: start: 20210122, end: 20210122
  5. LOSARTAN 100MG DAILY [Concomitant]
     Active Substance: LOSARTAN
  6. DOXAZOSIN 4MG DAILY [Concomitant]

REACTIONS (3)
  - Petechiae [None]
  - Epistaxis [None]
  - Ecchymosis [None]

NARRATIVE: CASE EVENT DATE: 20210127
